FAERS Safety Report 12618897 (Version 2)
Quarter: 2016Q3

REPORT INFORMATION
  Report Type: Spontaneous
  Country: NL (occurrence: NL)
  Receive Date: 20160803
  Receipt Date: 20160812
  Transmission Date: 20161109
  Serious: Yes (Hospitalization, Disabling)
  Sender: FDA-Public Use
  Company Number: NL-009507513-1607NLD011101

PATIENT
  Age: 78 Year
  Sex: Male

DRUGS (3)
  1. SIMVASTATIN. [Suspect]
     Active Substance: SIMVASTATIN
     Indication: VASCULAR GRAFT
     Dosage: UNK
     Route: 048
     Dates: start: 2014, end: 201501
  2. THERAPY UNSPECIFIED [Suspect]
     Active Substance: UNSPECIFIED INGREDIENT
  3. SIMVASTATIN. [Suspect]
     Active Substance: SIMVASTATIN
     Indication: CARDIAC OPERATION
     Dosage: UNK
     Route: 048
     Dates: start: 201408, end: 2014

REACTIONS (7)
  - Mobility decreased [Not Recovered/Not Resolved]
  - Musculoskeletal pain [Unknown]
  - Pain in extremity [Recovered/Resolved]
  - Musculoskeletal pain [Recovered/Resolved]
  - Product use issue [Unknown]
  - Pain in extremity [Unknown]
  - Asthenia [Unknown]

NARRATIVE: CASE EVENT DATE: 2014
